FAERS Safety Report 7509801-4 (Version None)
Quarter: 2011Q2

REPORT INFORMATION
  Report Type: 
  Country: None (occurrence: None)
  Receive Date: 20110527
  Receipt Date: 20110513
  Transmission Date: 20111010
  Serious: Yes (Other)
  Sender: FDA-Public Use
  Company Number: A0812500A

PATIENT
  Age: 39 Year
  Sex: Female
  Weight: 118.6 kg

DRUGS (10)
  1. AVANDAMET [Suspect]
     Indication: DIABETES MELLITUS
     Route: 048
     Dates: start: 20010601, end: 20070701
  2. COREG [Concomitant]
  3. LASIX [Concomitant]
  4. AVANDIA [Suspect]
     Indication: DIABETES MELLITUS
     Dosage: 4MG TWICE PER DAY
     Route: 048
     Dates: start: 20010601, end: 20070701
  5. ZOCOR [Concomitant]
  6. LANTUS [Concomitant]
  7. ADVAIR DISKUS 100/50 [Concomitant]
  8. ASPIRIN [Concomitant]
  9. LEXAPRO [Concomitant]
  10. DIOVAN [Concomitant]

REACTIONS (6)
  - CARDIAC DISORDER [None]
  - MYOCARDIAL ISCHAEMIA [None]
  - CARDIAC FAILURE CONGESTIVE [None]
  - HYPERTENSION [None]
  - WEIGHT INCREASED [None]
  - CARDIOMYOPATHY [None]
